FAERS Safety Report 23722776 (Version 1)
Quarter: 2024Q2

REPORT INFORMATION
  Report Type: Spontaneous
  Country: CA (occurrence: CA)
  Receive Date: 20240409
  Receipt Date: 20240409
  Transmission Date: 20240715
  Serious: Yes (Other)
  Sender: FDA-Public Use
  Company Number: CA-PFIZER INC-PV202400041336

PATIENT
  Age: 45 Year
  Sex: Female
  Weight: 77.3 kg

DRUGS (3)
  1. ELREXFIO [Suspect]
     Active Substance: ELRANATAMAB-BCMM
     Dosage: 12 MG ON DAY 1
     Dates: start: 20240401, end: 20240401
  2. ELREXFIO [Suspect]
     Active Substance: ELRANATAMAB-BCMM
     Dosage: 32 MG ON DAY 4
     Dates: start: 20240404, end: 20240404
  3. ELREXFIO [Suspect]
     Active Substance: ELRANATAMAB-BCMM
     Dosage: WEEKLY DOSING 76 MG X 12 CYCLES
     Route: 058

REACTIONS (1)
  - Cytokine release syndrome [Unknown]
